FAERS Safety Report 8502964-3 (Version None)
Quarter: 2012Q3

REPORT INFORMATION
  Report Type: 
  Country: None (occurrence: None)
  Receive Date: 20120711
  Receipt Date: 20120706
  Transmission Date: 20120928
  Serious: Yes (Other)
  Sender: FDA-Public Use
  Company Number: PHHY2012MX058900

PATIENT
  Age: 75 Year
  Sex: Female

DRUGS (3)
  1. DIOVAN HCT [Suspect]
     Indication: HYPERTENSION
     Dosage: 1 TABLET (320/12.5) DAILY
  2. NORVASC [Concomitant]
     Dosage: 1 TABLET DAILY
     Dates: start: 20080101
  3. ARTRIDOL [Concomitant]
     Dosage: UNK
     Dates: start: 20120601

REACTIONS (3)
  - GAIT DISTURBANCE [None]
  - PAIN [None]
  - SYNOVIAL DISORDER [None]
